FAERS Safety Report 16320634 (Version 1)
Quarter: 2019Q2

REPORT INFORMATION
  Report Type: Spontaneous
  Country: DE (occurrence: DE)
  Receive Date: 20190516
  Receipt Date: 20190516
  Transmission Date: 20190711
  Serious: Yes (Other)
  Sender: FDA-Public Use
  Company Number: PHHY2019DE107722

PATIENT

DRUGS (8)
  1. AMITRIPTYLINE [Suspect]
     Active Substance: AMITRIPTYLINE
     Indication: FOETAL EXPOSURE DURING PREGNANCY
     Dosage: (0-32+2GW)
     Route: 064
  2. ACETYLSALICYLIC ACID [Suspect]
     Active Substance: ASPIRIN
     Indication: FOETAL EXPOSURE DURING PREGNANCY
     Dosage: (0-32+2 GW)
     Route: 064
  3. BUPRENORPHINE. [Suspect]
     Active Substance: BUPRENORPHINE
     Indication: FOETAL EXPOSURE DURING PREGNANCY
     Dosage: (0-32GW)
     Route: 064
  4. MACROGOL [Suspect]
     Active Substance: POLYETHYLENE GLYCOLS
     Indication: FOETAL EXPOSURE DURING PREGNANCY
     Dosage: (0-32+2 GW)
     Route: 064
  5. GABAPENTIN. [Suspect]
     Active Substance: GABAPENTIN
     Indication: FOETAL EXPOSURE DURING PREGNANCY
     Dosage: (0-8 GW)
     Route: 064
  6. BISOPROLOL [Suspect]
     Active Substance: BISOPROLOL
     Indication: FOETAL EXPOSURE DURING PREGNANCY
     Dosage: MATERNAL DOSE: 2.5 MG
     Route: 064
  7. AMIODARONE [Suspect]
     Active Substance: AMIODARONE
     Indication: FOETAL EXPOSURE DURING PREGNANCY
     Dosage: (0-6 GW)
     Route: 064
  8. OMEPRAZOLE. [Suspect]
     Active Substance: OMEPRAZOLE
     Indication: FOETAL EXPOSURE DURING PREGNANCY
     Dosage: (0-10 GW)
     Route: 064

REACTIONS (6)
  - Ventricular septal defect [Unknown]
  - Small for dates baby [Unknown]
  - Atrial septal defect [Unknown]
  - Heart disease congenital [Unknown]
  - Premature baby [Unknown]
  - Foetal exposure during pregnancy [Unknown]
